FAERS Safety Report 17128931 (Version 1)
Quarter: 2019Q4

REPORT INFORMATION
  Report Type: Spontaneous
  Country: US (occurrence: US)
  Receive Date: 20191207
  Receipt Date: 20191207
  Transmission Date: 20200122
  Serious: Yes (Other)
  Sender: FDA-Public Use
  Company Number: None

PATIENT
  Age: 50 Year
  Sex: Female
  Weight: 89.1 kg

DRUGS (15)
  1. VICTOZA [Suspect]
     Active Substance: LIRAGLUTIDE
     Indication: WEIGHT CONTROL
     Dosage: ?          QUANTITY:1 INJECTION(S);?
     Route: 058
  2. VITAMIN B12 [Concomitant]
     Active Substance: CYANOCOBALAMIN
  3. KRILL OIL [Concomitant]
     Active Substance: DIETARY SUPPLEMENT\KRILL OIL
  4. SAXENDA [Suspect]
     Active Substance: LIRAGLUTIDE
     Indication: WEIGHT CONTROL
     Dosage: ?          QUANTITY:1 INJECTION(S);?
     Route: 058
  5. BABY ASPIRIN [Concomitant]
     Active Substance: ASPIRIN
  6. VIT D [Concomitant]
     Active Substance: VITAMIN D NOS
  7. VIIBRYD [Concomitant]
     Active Substance: VILAZODONE HYDROCHLORIDE
  8. FENTANYL. [Concomitant]
     Active Substance: FENTANYL
  9. PROVIGIL [Concomitant]
     Active Substance: MODAFINIL
  10. LEVORPHANOL [Concomitant]
     Active Substance: LEVORPHANOL
  11. SYNTHROID [Concomitant]
     Active Substance: LEVOTHYROXINE SODIUM
  12. ADDERALL [Concomitant]
     Active Substance: AMPHETAMINE ASPARTATE\AMPHETAMINE SULFATE\DEXTROAMPHETAMINE SACCHARATE\DEXTROAMPHETAMINE SULFATE
  13. REXULTI [Concomitant]
     Active Substance: BREXPIPRAZOLE
  14. CRESTOR [Concomitant]
     Active Substance: ROSUVASTATIN CALCIUM
  15. STOO.L SOFTENER [Concomitant]

REACTIONS (3)
  - Blood alkaline phosphatase increased [None]
  - Antimitochondrial antibody positive [None]
  - Primary biliary cholangitis [None]

NARRATIVE: CASE EVENT DATE: 20191202
